FAERS Safety Report 8556131-8 (Version None)
Quarter: 2012Q3

REPORT INFORMATION
  Report Type: 
  Country: None (occurrence: None)
  Receive Date: 20120801
  Receipt Date: 20101206
  Transmission Date: 20120928
  Serious: Yes (Hospitalization)
  Sender: FDA-Public Use
  Company Number: US-BAYER-201034059NA

PATIENT
  Age: 31 Year
  Sex: Female
  Weight: 80 kg

DRUGS (22)
  1. SINGULAIR [Concomitant]
     Indication: DYSPNOEA
     Dosage: 20 MG (DAILY DOSE), ,
     Dates: start: 20050101
  2. LORAZEPAM [Concomitant]
     Indication: ANXIETY
     Dosage: 1 MG (DAILY DOSE), TID,
     Dates: start: 20080701, end: 20080808
  3. YAZ [Suspect]
     Indication: PREMENSTRUAL SYNDROME
  4. OXYCODONE HCL AND ACETAMINOPHEN [Concomitant]
     Indication: PAIN
     Dosage: 5/325 MG 1-2 TABS Q6H
     Dates: start: 20050101, end: 20080808
  5. LYRICA [Concomitant]
     Indication: PAIN
     Dosage: 50 MG (DAILY DOSE), ,
     Dates: start: 20070101, end: 20080615
  6. GABAPENTIN [Concomitant]
     Dates: start: 20070901
  7. PROZAC [Concomitant]
  8. PERCOCET [Concomitant]
     Indication: PAIN
  9. TYLENOL W/ CODEINE NO. 3 [Concomitant]
     Indication: PAIN
  10. NAPROXEN [Concomitant]
     Dosage: 375 MG (DAILY DOSE), ,
     Dates: start: 20080601
  11. CYCLOBENZAPRINE [Concomitant]
     Indication: PAIN
     Dosage: Q8H
     Dates: start: 20080701, end: 20080808
  12. ALBUTEROL [Concomitant]
     Indication: PAINFUL RESPIRATION
     Dosage: 2 PUFFS
     Dates: start: 20070401
  13. LAMICTAL [Concomitant]
     Indication: PAIN
     Dates: start: 20070901, end: 20080315
  14. ACETAMINOPHEN W/ PROPOXYPHENE HCL [Concomitant]
     Dosage: 650 TABS
  15. YAZ [Suspect]
     Indication: DYSPNOEA
     Route: 048
     Dates: start: 20080310, end: 20080807
  16. FLUOXETINE HCL [Concomitant]
     Indication: DEPRESSION
     Dosage: 40 MG (DAILY DOSE), QD,
     Dates: start: 20080101
  17. FLEXERIL [Concomitant]
  18. PRAVASTATIN [Concomitant]
     Indication: BLOOD CHOLESTEROL INCREASED
     Dosage: 40 MG (DAILY DOSE), ,
     Dates: start: 20080101, end: 20090615
  19. ALPRAZOLAM [Concomitant]
     Indication: ANXIETY
     Dates: start: 20080101
  20. PROPOXYPHENE HYDROCHLORIDE [Concomitant]
     Dosage: 650 TABS
  21. ADVAIR [Concomitant]
     Indication: DYSPNOEA
     Dosage: 1 PUFF
     Dates: start: 20070401, end: 20080808
  22. EFFEXOR [Concomitant]
     Indication: DEPRESSION
     Dates: start: 20060101

REACTIONS (5)
  - MUSCULOSKELETAL PAIN [None]
  - MUSCLE SPASMS [None]
  - THROMBOSIS [None]
  - DYSPNOEA [None]
  - PULMONARY EMBOLISM [None]
